FAERS Safety Report 5341483-2 (Version None)
Quarter: 2007Q2

REPORT INFORMATION
  Report Type: 
  Country: None (occurrence: None)
  Receive Date: 20070530
  Receipt Date: 20070514
  Transmission Date: 20071010
  Serious: Yes (Hospitalization, Disabling)
  Sender: FDA-Public Use
  Company Number: 2007JP002047

PATIENT
  Age: 86 Year
  Sex: Female
  Weight: 32 kg

DRUGS (1)
  1. VESICARE [Suspect]
     Dosage: 5 MG, UID/QD, ORAL
     Route: 048
     Dates: end: 20061219

REACTIONS (4)
  - ASCITES [None]
  - CYSTITIS [None]
  - INFLAMMATION [None]
  - URINARY BLADDER RUPTURE [None]
